FAERS Safety Report 21852046 (Version 3)
Quarter: 2023Q1

REPORT INFORMATION
  Report Type: Spontaneous
  Country: US (occurrence: US)
  Receive Date: 20230112
  Receipt Date: 20230313
  Transmission Date: 20230418
  Serious: Yes (Other)
  Sender: FDA-Public Use
  Company Number: US-BIOGEN-2023BI01180055

PATIENT
  Age: 52 Year
  Sex: Female

DRUGS (1)
  1. TYSABRI [Suspect]
     Active Substance: NATALIZUMAB
     Indication: Multiple sclerosis
     Route: 050
     Dates: start: 20160718

REACTIONS (10)
  - Femur fracture [Unknown]
  - Full blood count decreased [Unknown]
  - Fall [Recovered/Resolved]
  - Loss of consciousness [Unknown]
  - Anaemia [Not Recovered/Not Resolved]
  - Fibula fracture [Not Recovered/Not Resolved]
  - Multiple sclerosis [Unknown]
  - Dizziness [Unknown]
  - Platelet count decreased [Unknown]
  - Dysgraphia [Unknown]

NARRATIVE: CASE EVENT DATE: 20220601
